FAERS Safety Report 8834860 (Version 1)
Quarter: 2012Q4

REPORT INFORMATION
  Report Type: Spontaneous
  Country: FR (occurrence: None)
  Receive Date: 20121009
  Receipt Date: 20121009
  Transmission Date: 20130627
  Serious: Yes (Hospitalization)
  Sender: FDA-Public Use
  Company Number: DSM-2012-01057

PATIENT
  Age: 51 Year
  Sex: Female

DRUGS (3)
  1. OLMETEC [Suspect]
     Indication: HYPERTENSION ARTERIAL
     Route: 048
     Dates: start: 201006
  2. NEBILOX [Suspect]
     Indication: HYPERTENSION ARTERIAL
     Route: 048
     Dates: start: 201006
  3. LERCAN [Suspect]
     Indication: HYPERTENSION ARTERIAL
     Route: 048
     Dates: start: 201006

REACTIONS (2)
  - Myalgia [None]
  - Muscle spasms [None]
